FAERS Safety Report 13644721 (Version 1)
Quarter: 2017Q2

REPORT INFORMATION
  Report Type: Spontaneous
  Country: US (occurrence: US)
  Receive Date: 20170612
  Receipt Date: 20170612
  Transmission Date: 20170830
  Serious: No
  Sender: FDA-Public Use
  Company Number: US-ROCHE-1341655

PATIENT
  Sex: Female

DRUGS (6)
  1. ASPIRIN. [Concomitant]
     Active Substance: ASPIRIN
  2. LOSARTAN POTASSIUM. [Concomitant]
     Active Substance: LOSARTAN POTASSIUM
  3. IMIPRAMINE [Concomitant]
     Active Substance: IMIPRAMINE
  4. ATORVASTATIN [Concomitant]
     Active Substance: ATORVASTATIN
  5. XELODA [Suspect]
     Active Substance: CAPECITABINE
     Indication: COLON CANCER
     Dosage: 14 DAYS ON 7 DAYS OFF
     Route: 048
     Dates: start: 20131120
  6. METOPROLOL SUCCINATE. [Concomitant]
     Active Substance: METOPROLOL SUCCINATE

REACTIONS (5)
  - Nail disorder [Not Recovered/Not Resolved]
  - Onychoclasis [Unknown]
  - Nail disorder [Unknown]
  - Joint injury [Unknown]
  - Skin exfoliation [Unknown]
